FAERS Safety Report 8888081 (Version 1)
Quarter: 2012Q4

REPORT INFORMATION
  Report Type: 
  Country: BR (occurrence: BR)
  Receive Date: 20121106
  Receipt Date: 20121106
  Transmission Date: 20130627
  Serious: Yes (Hospitalization)
  Sender: FDA-Public Use
  Company Number: BR-BRISTOL-MYERS SQUIBB COMPANY-17099797

PATIENT
  Age: 56 Year
  Sex: Male

DRUGS (7)
  1. GLIFAGE XR [Suspect]
     Indication: DIABETES MELLITUS
     Dosage: 750 mg
1 pill 2 times/day
     Dates: start: 20091025
  2. ACETYLSALICYLIC ACID [Concomitant]
  3. DIOVAN [Concomitant]
  4. CARVEDILOL [Concomitant]
  5. ERDOSTEINE [Concomitant]
  6. OMEPRAZOLE [Concomitant]
  7. VITAMIN E [Concomitant]

REACTIONS (2)
  - Myocardial infarction [Recovered/Resolved]
  - Blood glucose abnormal [Unknown]
